FAERS Safety Report 11651953 (Version 1)
Quarter: 2015Q4

REPORT INFORMATION
  Report Type: Spontaneous
  Country: US (occurrence: None)
  Receive Date: 20151021
  Receipt Date: 20151021
  Transmission Date: 20160304
  Serious: Yes (Disabling)
  Sender: FDA-Public Use
  Company Number: None

PATIENT
  Age: 65 Year
  Sex: Female
  Weight: 51.26 kg

DRUGS (12)
  1. VITAMIN [Concomitant]
     Active Substance: VITAMINS
  2. PREDNISONE. [Concomitant]
     Active Substance: PREDNISONE
  3. MULTIVITAMIN 50+ ADVANTAGE [Concomitant]
  4. BIOTIN [Concomitant]
     Active Substance: BIOTIN
  5. ALENDRONATE [Concomitant]
     Active Substance: ALENDRONATE SODIUM
  6. POTASSIUM [Concomitant]
     Active Substance: POTASSIUM
  7. CALCIUM [Concomitant]
     Active Substance: CALCIUM
  8. C [Concomitant]
  9. FISH OIL [Concomitant]
     Active Substance: FISH OIL
  10. D3 [Concomitant]
     Active Substance: 25-HYDROXYCHOLECALCIFEROL, 5-TRANS-
  11. ALENDRONATE SODIUM. [Suspect]
     Active Substance: ALENDRONATE SODIUM
     Indication: OSTEOPOROSIS
     Dosage: 70MG?1 PILL?1X/WK?ORLLY, 1ST THING FRIDAY MORNING W/2 FULL GLASSES OF WATER
     Dates: start: 201501, end: 20150918
  12. VAGIFEM [Concomitant]
     Active Substance: ESTRADIOL

REACTIONS (8)
  - Musculoskeletal pain [None]
  - Joint range of motion decreased [None]
  - Fatigue [None]
  - Pain [None]
  - Musculoskeletal stiffness [None]
  - Gait disturbance [None]
  - Pain in extremity [None]
  - Sleep disorder [None]

NARRATIVE: CASE EVENT DATE: 20150829
